FAERS Safety Report 24264677 (Version 3)
Quarter: 2025Q1

REPORT INFORMATION
  Report Type: Spontaneous
  Country: JP (occurrence: JP)
  Receive Date: 20240829
  Receipt Date: 20250110
  Transmission Date: 20250409
  Serious: Yes (Death, Other)
  Sender: ALEXION PHARMACEUTICALS
  Company Number: 2024A195689

PATIENT
  Age: 93 Year

DRUGS (2)
  1. ONDEXXYA [Suspect]
     Active Substance: ANDEXANET ALFA
     Indication: Subarachnoid haemorrhage
  2. ONDEXXYA [Suspect]
     Active Substance: ANDEXANET ALFA

REACTIONS (1)
  - Subarachnoid haemorrhage [Fatal]
